FAERS Safety Report 22789898 (Version 4)
Quarter: 2023Q4

REPORT INFORMATION
  Report Type: Spontaneous
  Country: US (occurrence: US)
  Receive Date: 20230804
  Receipt Date: 20231228
  Transmission Date: 20240109
  Serious: No
  Sender: FDA-Public Use
  Company Number: US-PFIZER INC-PV202300014043

PATIENT
  Age: 65 Year
  Sex: Female
  Weight: 85.261 kg

DRUGS (2)
  1. BRAFTOVI [Suspect]
     Active Substance: ENCORAFENIB
     Indication: Malignant melanoma
     Dosage: TAKE 3 CAPSULES BY MOUTH ONCE DAILY
     Route: 048
     Dates: start: 202212
  2. MEKTOVI [Suspect]
     Active Substance: BINIMETINIB
     Indication: Malignant melanoma
     Dosage: TAKE 3 (THREE) TABLETS BY MOUTH TWICE DAILY, APPROXIMATELY 12 HOURS APART. TAKE WITH OR WITHOUT FOOD
     Route: 048
     Dates: start: 202212

REACTIONS (3)
  - Depression [Recovering/Resolving]
  - Peripheral swelling [Recovering/Resolving]
  - Liver function test increased [Unknown]

NARRATIVE: CASE EVENT DATE: 20230201
